FAERS Safety Report 24198679 (Version 9)
Quarter: 2025Q4

REPORT INFORMATION
  Report Type: Report from Study
  Country: JP (occurrence: JP)
  Receive Date: 20240812
  Receipt Date: 20251124
  Transmission Date: 20260118
  Serious: Yes (Life-Threatening, Hospitalization, Other)
  Sender: ROCHE
  Company Number: JP-CHUGAI-2024024233

PATIENT
  Age: 76 Year
  Sex: Male
  Weight: 56 kg

DRUGS (28)
  1. HEMLIBRA [Suspect]
     Active Substance: EMICIZUMAB-KXWH
     Indication: Acquired haemophilia
     Route: 058
     Dates: start: 20240705, end: 20240705
  2. HEMLIBRA [Suspect]
     Active Substance: EMICIZUMAB-KXWH
     Route: 058
     Dates: start: 20240706, end: 20240706
  3. HEMLIBRA [Suspect]
     Active Substance: EMICIZUMAB-KXWH
     Route: 058
     Dates: start: 20240712, end: 20240712
  4. HEMLIBRA [Suspect]
     Active Substance: EMICIZUMAB-KXWH
     Route: 058
     Dates: start: 20240725, end: 20240905
  5. PREDNISOLONE [Concomitant]
     Active Substance: PREDNISOLONE
     Dosage: 30MG/DAY
     Route: 048
     Dates: start: 20240822, end: 20240904
  6. PREDNISOLONE [Concomitant]
     Active Substance: PREDNISOLONE
     Dosage: 25MG/DAY
     Route: 048
     Dates: start: 20240905, end: 20240911
  7. PREDNISOLONE [Concomitant]
     Active Substance: PREDNISOLONE
     Dosage: 20MG/DAY
     Route: 048
     Dates: start: 20240912, end: 20240918
  8. PREDNISOLONE [Concomitant]
     Active Substance: PREDNISOLONE
     Route: 048
     Dates: start: 20240919, end: 20240929
  9. PREDNISOLONE [Concomitant]
     Active Substance: PREDNISOLONE
     Dosage: 10MG/DAY
     Route: 048
     Dates: start: 20240930, end: 20241023
  10. PREDNISOLONE [Concomitant]
     Active Substance: PREDNISOLONE
     Dosage: 5MG/DAY
     Route: 048
     Dates: start: 20241024
  11. COAGULATION FACTOR VIIA RECOMBINANT HUMAN [Concomitant]
     Active Substance: COAGULATION FACTOR VIIA RECOMBINANT HUMAN
     Indication: Haemostasis
     Dosage: 5 MILLIGRAM, EVERY THREE HOURS, 15 DOSES IN TOTAL, AT  08:00
     Route: 065
     Dates: start: 20240710, end: 20240712
  12. COAGULATION FACTOR VIIA RECOMBINANT HUMAN [Concomitant]
     Active Substance: COAGULATION FACTOR VIIA RECOMBINANT HUMAN
     Dosage: 5 MILLIGRAM, AT 13:00
     Route: 065
     Dates: start: 20240720
  13. COAGULATION FACTOR VIIA RECOMBINANT HUMAN [Concomitant]
     Active Substance: COAGULATION FACTOR VIIA RECOMBINANT HUMAN
     Dosage: 5 MILLIGRAM,  AT 10:08
     Route: 065
     Dates: start: 20240812
  14. COAGULATION FACTOR VIIA RECOMBINANT HUMAN [Concomitant]
     Active Substance: COAGULATION FACTOR VIIA RECOMBINANT HUMAN
     Dosage: 5 MILLIGRAM, AT 13:01
     Route: 065
     Dates: start: 20240812
  15. COAGULATION FACTOR VIIA RECOMBINANT HUMAN [Concomitant]
     Active Substance: COAGULATION FACTOR VIIA RECOMBINANT HUMAN
     Dosage: 5 MILLIGRAM, AT 07:12
     Route: 065
     Dates: start: 20240813
  16. COAGULATION FACTOR VIIA RECOMBINANT HUMAN [Concomitant]
     Active Substance: COAGULATION FACTOR VIIA RECOMBINANT HUMAN
     Dosage: 5 MILLIGRAM AT 22:54
     Route: 065
     Dates: start: 20240813
  17. COAGULATION FACTOR VIIA RECOMBINANT HUMAN [Concomitant]
     Active Substance: COAGULATION FACTOR VIIA RECOMBINANT HUMAN
     Dosage: 5 MILLIGRAM
     Route: 065
     Dates: start: 20240814
  18. FIBROGAMMIN P [Concomitant]
     Active Substance: FACTOR XIII CONCENTRATE (HUMAN)
     Indication: Haemostasis
     Dosage: 16 MILLILITER, QD
     Route: 042
     Dates: start: 20240713, end: 20240716
  19. PLATELETS [Concomitant]
     Active Substance: HUMAN PLATELET, ALLOGENIC
     Indication: Haemostasis
     Dosage: 2 INTERNATIONAL UNIT, QD, AT THE TIME OF HAEMORRHAGE
     Route: 042
     Dates: start: 20240709, end: 20240905
  20. PLATELETS [Concomitant]
     Active Substance: HUMAN PLATELET, ALLOGENIC
     Dosage: 2 INTERNATIONAL UNIT, QD, AT THE TIME OF HAEMORRHAGE
     Route: 042
     Dates: start: 20240720
  21. PLATELETS [Concomitant]
     Active Substance: HUMAN PLATELET, ALLOGENIC
     Dosage: 4 INTERNATIONAL UNIT, QD, AT THE TIME OF HAEMORRHAGE
     Route: 042
     Dates: start: 20240803
  22. PLATELETS [Concomitant]
     Active Substance: HUMAN PLATELET, ALLOGENIC
     Dosage: 2 INTERNATIONAL UNIT, QD, AT THE TIME OF HAEMORRHAGE
     Route: 042
     Dates: start: 20240804
  23. PLATELETS [Concomitant]
     Active Substance: HUMAN PLATELET, ALLOGENIC
     Dosage: 2 INTERNATIONAL UNIT, QD, AT THE TIME OF HAEMORRHAGE
     Route: 042
     Dates: start: 20240812
  24. PLATELETS [Concomitant]
     Active Substance: HUMAN PLATELET, ALLOGENIC
     Dosage: 4 INTERNATIONAL UNIT, QD, AT THE TIME OF HAEMORRHAGE
     Route: 042
     Dates: start: 20240902
  25. PLATELETS [Concomitant]
     Active Substance: HUMAN PLATELET, ALLOGENIC
     Dosage: 2 INTERNATIONAL UNIT, QD, AT THE TIME OF HAEMORRHAGE
     Route: 042
     Dates: start: 20240905
  26. PLATELETS [Concomitant]
     Active Substance: HUMAN PLATELET, ALLOGENIC
     Dosage: 2 INTERNATIONAL UNIT, QD, AT THE TIME OF HAEMORRHAGE
     Route: 042
     Dates: start: 20241007
  27. PLATELETS [Concomitant]
     Active Substance: HUMAN PLATELET, ALLOGENIC
     Dosage: 4 INTERNATIONAL UNIT, QD, AT THE TIME OF HAEMORRHAGE
     Route: 042
     Dates: start: 20241008
  28. PLATELETS [Concomitant]
     Active Substance: HUMAN PLATELET, ALLOGENIC
     Dosage: 2 INTERNATIONAL UNIT, QD, AT THE TIME OF HAEMORRHAGE
     Route: 042
     Dates: start: 20241025

REACTIONS (5)
  - Activated partial thromboplastin time prolonged [Recovered/Resolved]
  - Haemoglobin decreased [Recovered/Resolved]
  - Post procedural haematoma [Recovered/Resolved]
  - Melaena [Unknown]
  - Arterial haemorrhage [Recovered/Resolved]

NARRATIVE: CASE EVENT DATE: 20240712
